FAERS Safety Report 19879713 (Version 1)
Quarter: 2021Q3

REPORT INFORMATION
  Report Type: Spontaneous
  Country: CA (occurrence: CA)
  Receive Date: 20210924
  Receipt Date: 20210924
  Transmission Date: 20211014
  Serious: Yes (Life-Threatening, Other)
  Sender: FDA-Public Use
  Company Number: CA-PFIZER INC-202101218851

PATIENT
  Age: 73 Year
  Sex: Female
  Weight: 102 kg

DRUGS (3)
  1. CANDESARTAN. [Concomitant]
     Active Substance: CANDESARTAN
  2. PREDNISONE. [Concomitant]
     Active Substance: PREDNISONE
     Dosage: UNK
  3. RUXIENCE [Suspect]
     Active Substance: RITUXIMAB-PVVR
     Indication: GRANULOMATOSIS WITH POLYANGIITIS
     Dosage: 800 MG, WEEKLY (3 DOSES1ST DOSE IN HOSPITAL)
     Route: 042

REACTIONS (4)
  - Renal disorder [Unknown]
  - Dyspnoea [Unknown]
  - Off label use [Unknown]
  - Lung disorder [Unknown]
